FAERS Safety Report 8045482-1 (Version None)
Quarter: 2012Q1

REPORT INFORMATION
  Report Type: 
  Country: None (occurrence: None)
  Receive Date: 20120113
  Receipt Date: 20120104
  Transmission Date: 20120608
  Serious: Yes (Other)
  Sender: FDA-Public Use
  Company Number: US-PFIZER INC-2012003006

PATIENT
  Sex: Male
  Weight: 95.238 kg

DRUGS (2)
  1. LIPITOR [Suspect]
     Indication: BLOOD CHOLESTEROL INCREASED
     Dosage: 80 MG, DAILY
     Route: 048
  2. ZOCOR [Suspect]
     Indication: BLOOD CHOLESTEROL INCREASED
     Dosage: 80 MG, DAILY

REACTIONS (4)
  - MULTIPLE MYELOMA [None]
  - CONVULSION [None]
  - HALLUCINATION [None]
  - DRUG INEFFECTIVE [None]
